FAERS Safety Report 5912731-2 (Version None)
Quarter: 2008Q4

REPORT INFORMATION
  Report Type: 
  Country: None (occurrence: None)
  Receive Date: 20081008
  Receipt Date: 20080926
  Transmission Date: 20090506
  Serious: Yes (Death, Life-Threatening, Hospitalization)
  Sender: FDA-Public Use
  Company Number: FR-ELI_LILLY_AND_COMPANY-FR200809003196

PATIENT
  Sex: Female

DRUGS (17)
  1. ZYPREXA [Suspect]
     Route: 048
     Dates: start: 20070601, end: 20080112
  2. HUMALOG [Suspect]
     Dates: start: 20070501
  3. ARANESP [Concomitant]
  4. FOSAVANCE [Concomitant]
  5. LEXOMIL [Concomitant]
  6. LAROXYL [Concomitant]
     Dosage: 25 MG, UNK
     Route: 048
     Dates: start: 20050101, end: 20080112
  7. TERCIAN [Concomitant]
     Dosage: 25 MG, UNK
     Route: 048
     Dates: start: 20050101
  8. DI-ANTALVIC [Concomitant]
  9. SULFARLEM [Concomitant]
  10. NEXIUM [Concomitant]
  11. ELISOR [Concomitant]
  12. RENAGEL [Concomitant]
  13. ROCALTROL [Concomitant]
  14. DETENSIEL [Concomitant]
  15. DIFFU K [Concomitant]
  16. LASIX [Concomitant]
  17. TARDYFERON [Concomitant]

REACTIONS (9)
  - ANTIDEPRESSANT DRUG LEVEL ABOVE THERAPEUTIC [None]
  - BRADYCARDIA [None]
  - CARDIOGENIC SHOCK [None]
  - HYPOGLYCAEMIA [None]
  - HYPONATRAEMIA [None]
  - HYPOTENSION [None]
  - METABOLIC ACIDOSIS [None]
  - MULTI-ORGAN FAILURE [None]
  - RHABDOMYOLYSIS [None]
